FAERS Safety Report 20547281 (Version 3)
Quarter: 2023Q1

REPORT INFORMATION
  Report Type: Spontaneous
  Country: US (occurrence: US)
  Receive Date: 20220303
  Receipt Date: 20230209
  Transmission Date: 20230418
  Serious: Yes (Hospitalization, Other)
  Sender: FDA-Public Use
  Company Number: US-PFIZER INC-202200308347

PATIENT
  Age: 67 Year
  Sex: Female
  Weight: 90.72 kg

DRUGS (5)
  1. XELJANZ XR [Suspect]
     Active Substance: TOFACITINIB CITRATE
     Indication: Rheumatoid arthritis
     Dosage: 11 MG, 1X/DAY (ONE A DAY IN THE MORNING)
  2. DEPAKOTE [Concomitant]
     Active Substance: DIVALPROEX SODIUM
     Dosage: UNK
  3. LIPITOR [Concomitant]
     Active Substance: ATORVASTATIN CALCIUM
     Indication: Blood cholesterol abnormal
     Dosage: UNK
  4. VITAMINS [Concomitant]
     Active Substance: VITAMINS
     Dosage: UNK
  5. VITAMIN D NOS [Concomitant]
     Active Substance: VITAMIN D NOS
     Dosage: UNK

REACTIONS (35)
  - Depression [Recovering/Resolving]
  - Haematochezia [Unknown]
  - Melaena [Unknown]
  - Sjogren^s syndrome [Unknown]
  - Intentional self-injury [Unknown]
  - Product dose omission issue [Unknown]
  - Condition aggravated [Recovered/Resolved]
  - Stress [Unknown]
  - Therapeutic product effect incomplete [Recovered/Resolved]
  - Fatigue [Unknown]
  - Pyrexia [Unknown]
  - Infection [Unknown]
  - Eye disorder [Unknown]
  - Visual impairment [Unknown]
  - Stomatitis [Unknown]
  - Skin lesion [Unknown]
  - Chest pain [Unknown]
  - Cough [Unknown]
  - Exercise tolerance decreased [Unknown]
  - Blood pressure abnormal [Unknown]
  - Oedema [Unknown]
  - Abdominal pain [Unknown]
  - Bowel movement irregularity [Unknown]
  - Jaundice [Unknown]
  - Urinary tract disorder [Unknown]
  - Blood glucose abnormal [Unknown]
  - Weight increased [Unknown]
  - Headache [Unknown]
  - Tremor [Unknown]
  - Decreased appetite [Unknown]
  - Vomiting [Unknown]
  - Diarrhoea [Unknown]
  - Viral infection [Unknown]
  - Withdrawal syndrome [Unknown]
  - Body height decreased [Unknown]

NARRATIVE: CASE EVENT DATE: 20221001
